FAERS Safety Report 17473414 (Version 1)
Quarter: 2020Q1

REPORT INFORMATION
  Report Type: Report from Study
  Country: BR (occurrence: BR)
  Receive Date: 20200228
  Receipt Date: 20200228
  Transmission Date: 20200409
  Serious: Yes (Other)
  Sender: FDA-Public Use
  Company Number: BR-JNJFOC-20170514428

PATIENT
  Age: 50 Year
  Sex: Female

DRUGS (2)
  1. CICLOPRIMOGYNA [Concomitant]
     Indication: HORMONE LEVEL ABNORMAL
     Route: 065
  2. STELARA [Suspect]
     Active Substance: USTEKINUMAB
     Indication: PSORIASIS
     Route: 058
     Dates: end: 20170208

REACTIONS (10)
  - Drug ineffective [Unknown]
  - Synovial cyst [Not Recovered/Not Resolved]
  - Nail discolouration [Not Recovered/Not Resolved]
  - Product dose omission [Unknown]
  - Psoriatic arthropathy [Not Recovered/Not Resolved]
  - Deafness [Unknown]
  - Hypersensitivity [Recovered/Resolved]
  - Psoriasis [Not Recovered/Not Resolved]
  - Headache [Not Recovered/Not Resolved]
  - Nail disorder [Not Recovered/Not Resolved]

NARRATIVE: CASE EVENT DATE: 2017
